FAERS Safety Report 6285075-X (Version None)
Quarter: 2009Q3

REPORT INFORMATION
  Report Type: 
  Country: None (occurrence: None)
  Receive Date: 20090727
  Receipt Date: 20090723
  Transmission Date: 20100115
  Serious: Yes (Hospitalization)
  Sender: FDA-Public Use
  Company Number: US-BRISTOL-MYERS SQUIBB COMPANY-14681977

PATIENT
  Age: 58 Year
  Sex: Female
  Weight: 144 kg

DRUGS (3)
  1. CISPLATIN [Suspect]
     Indication: SQUAMOUS CELL CARCINOMA OF THE CERVIX
     Dosage: 3OMG/M2/WEEK X 6 WEEKS;STARTED ON 27APR09
     Dates: start: 20090601, end: 20090601
  2. ERBITUX [Suspect]
     Indication: SQUAMOUS CELL CARCINOMA OF THE CERVIX
     Dosage: 400MG/M2 INITIAL LOADING DOSE WEEK 1, THEN 250 MG/M2 X 5 WEEKS;STARTED ON 27APR09
     Dates: start: 20090601, end: 20090601
  3. RADIATION THERAPY [Suspect]
     Indication: SQUAMOUS CELL CARCINOMA OF THE CERVIX
     Dosage: 1DF = 1800 CGY NUMBER OF FRACTIONS: 5 NUMBER OF ELASPSED DAYS: 3 LAST DOSE ON 12JUN09
     Dates: start: 20090427

REACTIONS (4)
  - DECREASED APPETITE [None]
  - DIARRHOEA [None]
  - MUSCULAR WEAKNESS [None]
  - OESOPHAGEAL INFECTION [None]
